FAERS Safety Report 9351892 (Version 1)
Quarter: 2013Q2

REPORT INFORMATION
  Report Type: Spontaneous
  Country: RS (occurrence: RS)
  Receive Date: 20130617
  Receipt Date: 20130617
  Transmission Date: 20140414
  Serious: Yes (Life-Threatening, Hospitalization)
  Sender: FDA-Public Use
  Company Number: RS-TEVA-411508ISR

PATIENT
  Sex: Female
  Weight: 64 kg

DRUGS (2)
  1. FLUOROURACIL [Suspect]
     Indication: METASTASES TO LIVER
     Route: 042
  2. CISPLATIN [Suspect]
     Indication: METASTASES TO LIVER

REACTIONS (3)
  - Feeling abnormal [Recovered/Resolved]
  - Dehydration [Recovered/Resolved]
  - Weight decreased [Recovered/Resolved]
